FAERS Safety Report 8069374-7 (Version None)
Quarter: 2012Q1

REPORT INFORMATION
  Report Type: 
  Country: None (occurrence: None)
  Receive Date: 20120125
  Receipt Date: 20120119
  Transmission Date: 20120608
  Serious: Yes (Other)
  Sender: FDA-Public Use
  Company Number: FI-PFIZER INC-2011275203

PATIENT
  Age: 59 Year
  Sex: Female

DRUGS (7)
  1. VARENICLINE TARTRATE [Suspect]
     Dosage: 0.5 MG, UNK
     Dates: start: 20110923, end: 20110101
  2. OPAMOX [Concomitant]
     Indication: STRESS
     Dosage: UNK
  3. AIROMIR [Concomitant]
     Dosage: UNK
  4. VARENICLINE TARTRATE [Suspect]
     Dosage: 0.5 MG, UNK
     Dates: start: 20111004, end: 20111006
  5. ADURSAL [Concomitant]
     Dosage: 900 MG, 2X/DAY
  6. KALCIPOS-D [Concomitant]
     Dosage: 500 MG, 2X/DAY
  7. VARENICLINE TARTRATE [Suspect]
     Dosage: 1 MG, 2X/DAY
     Dates: start: 20110101, end: 20110101

REACTIONS (8)
  - INSOMNIA [None]
  - NAUSEA [None]
  - CARDIAC DISCOMFORT [None]
  - PSYCHOMOTOR HYPERACTIVITY [None]
  - MALAISE [None]
  - ARRHYTHMIA [None]
  - HEART RATE INCREASED [None]
  - BLOOD PRESSURE FLUCTUATION [None]
